FAERS Safety Report 7662361-X (Version None)
Quarter: 2011Q3

REPORT INFORMATION
  Report Type: 
  Country: None (occurrence: None)
  Receive Date: 20110805
  Receipt Date: 20101231
  Transmission Date: 20111222
  Serious: No
  Sender: FDA-Public Use
  Company Number: US-ABBOTT-11P-163-0694660-00

PATIENT
  Sex: Female
  Weight: 131.66 kg

DRUGS (1)
  1. NIASPAN [Suspect]
     Indication: HYPERLIPIDAEMIA
     Dosage: AT BEDTIME
     Dates: start: 20101214

REACTIONS (3)
  - FLUSHING [None]
  - BURNING SENSATION [None]
  - DIARRHOEA [None]
